FAERS Safety Report 6054961-8 (Version None)
Quarter: 2009Q1

REPORT INFORMATION
  Report Type: 
  Country: None (occurrence: None)
  Receive Date: 20090123
  Receipt Date: 20090116
  Transmission Date: 20090719
  Serious: Yes (Hospitalization)
  Sender: FDA-Public Use
  Company Number: CFNT-310

PATIENT
  Sex: Female

DRUGS (2)
  1. GIASION (CEFDITOREN PIVOXIL) 200 MG [Suspect]
     Indication: BRONCHITIS
     Dosage: 200 MG BID ORALLY
     Route: 048
  2. ANTIHYPERTENSIVES [Concomitant]

REACTIONS (2)
  - AMNESIA [None]
  - ISCHAEMIA [None]
